FAERS Safety Report 5810539-X (Version None)
Quarter: 2008Q3

REPORT INFORMATION
  Report Type: 
  Country: None (occurrence: None)
  Receive Date: 20080715
  Receipt Date: 20080710
  Transmission Date: 20090109
  Serious: Yes (Other)
  Sender: FDA-Public Use
  Company Number: US-ASTRAZENECA-2008UW13810

PATIENT
  Age: 56 Year
  Sex: Male

DRUGS (7)
  1. CRESTOR [Suspect]
     Route: 048
  2. METFORMIN HYDROCHLORIDE [Suspect]
  3. PLAVIX [Suspect]
     Dates: end: 20080221
  4. LANTUS [Suspect]
  5. ZETIA [Suspect]
  6. COZAAR [Suspect]
  7. BYETTA [Concomitant]
     Indication: PREMEDICATION

REACTIONS (1)
  - NEPHRITIS ALLERGIC [None]
